FAERS Safety Report 10334843 (Version 1)
Quarter: 2014Q3

REPORT INFORMATION
  Report Type: Spontaneous
  Country: US (occurrence: None)
  Receive Date: 20140722
  Receipt Date: 20140722
  Transmission Date: 20150326
  Serious: Yes (Life-Threatening, Disabling, Other)
  Sender: FDA-Public Use
  Company Number: None

PATIENT
  Age: 52 Year
  Sex: Female
  Weight: 86.18 kg

DRUGS (11)
  1. NEURONTIN [Concomitant]
     Active Substance: GABAPENTIN
  2. GABAPENTIN. 300MG. FELT LIKE ^AT LEAST^ TO 5,000 M DAILY MAXIUM DOSE(S) @ LEAST UNCERTAIN. TO: CAMBER PHA. [Suspect]
     Active Substance: GABAPENTIN
     Indication: BIPOLAR DISORDER
     Dosage: 300 MG CAPSULES?1200MG DAILY?4CAPSULE DAILY ?TWICE DAILY?BY MOUTH
     Route: 048
     Dates: start: 200811
  3. ACETAMINOPHEN. [Concomitant]
     Active Substance: ACETAMINOPHEN
  4. GABAPENTIN. 300MG. FELT LIKE ^AT LEAST^ TO 5,000 M DAILY MAXIUM DOSE(S) @ LEAST UNCERTAIN. TO: CAMBER PHA. [Suspect]
     Active Substance: GABAPENTIN
     Indication: BIPOLAR I DISORDER
     Dosage: 300 MG CAPSULES?1200MG DAILY?4CAPSULE DAILY ?TWICE DAILY?BY MOUTH
     Route: 048
     Dates: start: 200811
  5. ABILIFY [Concomitant]
     Active Substance: ARIPIPRAZOLE
  6. BIOTIN [Concomitant]
     Active Substance: BIOTIN
  7. LEXAPRO [Concomitant]
     Active Substance: ESCITALOPRAM OXALATE
  8. LEVOTHYROXINE [Concomitant]
     Active Substance: LEVOTHYROXINE
  9. FLUTICASONE [Concomitant]
     Active Substance: FLUTICASONE\FLUTICASONE PROPIONATE
  10. ALEVE [Concomitant]
     Active Substance: NAPROXEN SODIUM
  11. MULTIVITAMIN FOR WOMEN [Concomitant]

REACTIONS (4)
  - Oedema peripheral [None]
  - Joint swelling [None]
  - Muscle spasms [None]
  - Pain in extremity [None]

NARRATIVE: CASE EVENT DATE: 20140525
